FAERS Safety Report 11149001 (Version 1)
Quarter: 2015Q2

REPORT INFORMATION
  Report Type: Spontaneous
  Country: JP (occurrence: None)
  Receive Date: 20150527
  Receipt Date: 20150527
  Transmission Date: 20150821
  Serious: Yes (Hospitalization)
  Sender: FDA-Public Use
  Company Number: 2012TP000220

PATIENT
  Age: 73 Year
  Sex: Female

DRUGS (3)
  1. LIDOCAINE (LIDOCAINE) [Suspect]
     Active Substance: LIDOCAINE
     Indication: DENTAL IMPLANTATION
     Dosage: DENTAL IMPLANTATION
  2. LIDOCAINE (LIDOCAINE) [Suspect]
     Active Substance: LIDOCAINE
     Indication: PROCEDURAL PAIN
     Route: 061
     Dates: start: 201103
  3. LIDOCAINE (LIDOCAINE) [Suspect]
     Active Substance: LIDOCAINE
     Indication: PREMEDICATION
     Dosage: SEVERAL YEARS
     Route: 061

REACTIONS (7)
  - Skin test positive [None]
  - Haemangioma [None]
  - Dermatitis contact [None]
  - Application site haematoma [None]
  - Erythema multiforme [None]
  - Rash pruritic [None]
  - Drug eruption [None]

NARRATIVE: CASE EVENT DATE: 201103
